FAERS Safety Report 6578293-4 (Version None)
Quarter: 2010Q1

REPORT INFORMATION
  Report Type: 
  Country: None (occurrence: None)
  Receive Date: 20100211
  Receipt Date: 20100205
  Transmission Date: 20100710
  Serious: Yes (Other)
  Sender: FDA-Public Use
  Company Number: B0631516A

PATIENT
  Sex: Male

DRUGS (1)
  1. CLAMOXYL [Suspect]
     Dosage: 1000MG SINGLE DOSE
     Route: 048
     Dates: start: 20100118, end: 20100118

REACTIONS (6)
  - BLISTER [None]
  - ERYTHEMA [None]
  - HYPERSENSITIVITY [None]
  - PRURITUS [None]
  - RASH [None]
  - URTICARIA [None]
